FAERS Safety Report 24087363 (Version 1)
Quarter: 2024Q3

REPORT INFORMATION
  Report Type: Report from Study
  Country: DE (occurrence: DE)
  Receive Date: 20240714
  Receipt Date: 20240714
  Transmission Date: 20241017
  Serious: Yes (Death, Hospitalization, Other)
  Sender: ACORDA
  Company Number: DE-ACORDA-ACO_177136_2024

PATIENT
  Sex: Male

DRUGS (1)
  1. INBRIJA [Suspect]
     Active Substance: LEVODOPA
     Indication: Parkinson^s disease
     Dosage: 33 MILLIGRAM
     Dates: start: 20240428, end: 20240525

REACTIONS (4)
  - Death [Fatal]
  - Pneumonia [Unknown]
  - Cough [Unknown]
  - Sputum discoloured [Unknown]

NARRATIVE: CASE EVENT DATE: 20240101
